FAERS Safety Report 4404866-0 (Version None)
Quarter: 2004Q3

REPORT INFORMATION
  Report Type: 
  Country: None (occurrence: None)
  Receive Date: 20040722
  Receipt Date: 20040527
  Transmission Date: 20050211
  Serious: Yes (Other)
  Sender: FDA-Public Use
  Company Number: PHBS2004CA07112

PATIENT
  Age: 51 Year
  Sex: Female

DRUGS (4)
  1. ELIDEL [Suspect]
     Indication: DERMATITIS ATOPIC
     Dosage: UNK, BID
     Route: 061
     Dates: start: 20040421, end: 20040503
  2. QVAR 40 [Concomitant]
  3. OXEZE [Concomitant]
  4. ALCOHOL [Interacting]

REACTIONS (16)
  - ABDOMINAL PAIN UPPER [None]
  - ALCOHOL INTERACTION [None]
  - APPLICATION SITE BURNING [None]
  - DIARRHOEA [None]
  - DRY SKIN [None]
  - ECZEMA [None]
  - ERYTHEMA [None]
  - EYE PAIN [None]
  - FLUSHING [None]
  - HEADACHE [None]
  - KERATOCONJUNCTIVITIS SICCA [None]
  - PHOTOSENSITIVITY REACTION [None]
  - PRURITUS [None]
  - SKIN BURNING SENSATION [None]
  - SKIN DISORDER [None]
  - VOMITING [None]
